FAERS Safety Report 9812309 (Version 1)
Quarter: 2014Q1

REPORT INFORMATION
  Report Type: Spontaneous
  Country: US (occurrence: US)
  Receive Date: 20140113
  Receipt Date: 20140113
  Transmission Date: 20141002
  Serious: Yes (Death)
  Sender: FDA-Public Use
  Company Number: US-ASTRAZENECA-2014SE01741

PATIENT
  Age: 60 Year
  Sex: Female

DRUGS (7)
  1. ATENOLOL [Suspect]
     Route: 048
  2. HYDROCHLOROTHIAZIDE/LISINOPRIL [Suspect]
     Route: 048
  3. ZOLPIDEM [Suspect]
     Route: 048
  4. METFORMIN [Suspect]
     Route: 048
  5. DIGOXIN [Suspect]
     Route: 048
  6. ONDANSETRON [Suspect]
     Route: 048
  7. PRAVASTATIN [Suspect]
     Route: 048

REACTIONS (2)
  - Toxicity to various agents [Fatal]
  - Completed suicide [Fatal]
